FAERS Safety Report 5573339-4 (Version None)
Quarter: 2007Q4

REPORT INFORMATION
  Report Type: 
  Country: None (occurrence: None)
  Receive Date: 20071226
  Receipt Date: 20071217
  Transmission Date: 20080405
  Serious: Yes (Hospitalization)
  Sender: FDA-Public Use
  Company Number: PHHY2007JP00990

PATIENT
  Age: 73 Year
  Sex: Male
  Weight: 71 kg

DRUGS (7)
  1. DASEN [Concomitant]
     Indication: ASTHMA
     Dosage: 3 DF, UNK
     Route: 048
     Dates: start: 20021021, end: 20050722
  2. DIOVAN [Suspect]
     Indication: HYPERTENSION
     Dosage: 40 MG, QD
     Route: 048
     Dates: start: 20030404, end: 20041218
  3. DIOVAN [Suspect]
     Dosage: 80 MG, QD
     Route: 048
     Dates: start: 20041219, end: 20050722
  4. BAYLOTENSIN [Concomitant]
     Indication: HYPERTENSION
     Dosage: 10 MG, UNK
     Route: 048
     Dates: start: 20020930, end: 20050722
  5. THEO-DUR [Concomitant]
     Indication: ASTHMA
     Dosage: 400 MG, UNK
     Route: 048
     Dates: start: 20020930, end: 20050722
  6. ZESULAN [Concomitant]
     Indication: ASTHMA
     Dosage: 2 DF, UNK
     Route: 048
     Dates: start: 20020930, end: 20050722
  7. GASTER [Concomitant]
     Dosage: 20 MG, UNK
     Route: 048
     Dates: start: 20050713, end: 20050722

REACTIONS (2)
  - COUGH [None]
  - INTERSTITIAL LUNG DISEASE [None]
